FAERS Safety Report 8422824-6 (Version None)
Quarter: 2012Q2

REPORT INFORMATION
  Report Type: 
  Country: None (occurrence: None)
  Receive Date: 20120608
  Receipt Date: 20120605
  Transmission Date: 20120825
  Serious: Yes (Hospitalization, Disabling)
  Sender: FDA-Public Use
  Company Number: US-MERCK-1206USA00828

PATIENT
  Age: 48 Year
  Sex: Male

DRUGS (1)
  1. FOSAMAX [Suspect]
     Route: 048
     Dates: start: 20030101, end: 20060101

REACTIONS (2)
  - FEMUR FRACTURE [None]
  - OSTEOPOROSIS [None]
